FAERS Safety Report 9744418 (Version 4)
Quarter: 2014Q1

REPORT INFORMATION
  Report Type: Report from Study
  Country: FR (occurrence: FR)
  Receive Date: 20131210
  Receipt Date: 20140131
  Transmission Date: 20141002
  Serious: Yes (Hospitalization, Other)
  Sender: FDA-Public Use
  Company Number: FR-TEVA-411341USA

PATIENT
  Age: 57 Year
  Sex: Female
  Weight: 76 kg

DRUGS (7)
  1. BENDAMUSTINE [Suspect]
     Indication: CHRONIC LYMPHOCYTIC LEUKAEMIA
     Dosage: 2 DAYS PER MONTH
     Route: 042
     Dates: start: 20130528
  2. RITUXIMAB [Suspect]
     Indication: CHRONIC LYMPHOCYTIC LEUKAEMIA
     Dosage: TOTAL DOSE
     Route: 042
     Dates: start: 20130528
  3. IBRUTINIB/PLACEBO [Suspect]
     Indication: CHRONIC LYMPHOCYTIC LEUKAEMIA
     Dosage: 420 MILLIGRAM DAILY; IBRUTINIB VS. PLACEBO
     Route: 048
     Dates: start: 20130528
  4. DEXCHLORPHENIRAMINE [Concomitant]
     Dates: start: 20130527
  5. HYDROCORTISONE HEMISUCCINATE [Concomitant]
     Dates: start: 20130527
  6. PARACETAMOL [Concomitant]
     Dates: start: 20130527
  7. RINCAGE SODIUM CHLORIDE 0.9% [Concomitant]
     Dates: start: 20130527

REACTIONS (4)
  - Cytokine release syndrome [Unknown]
  - Tumour lysis syndrome [Recovered/Resolved]
  - Pyrexia [Recovered/Resolved]
  - Thrombocytopenia [Unknown]
